FAERS Safety Report 7828628-7 (Version None)
Quarter: 2011Q4

REPORT INFORMATION
  Report Type: 
  Country: None (occurrence: None)
  Receive Date: 20111020
  Receipt Date: 20111013
  Transmission Date: 20120403
  Serious: Yes (Congenital Anomaly)
  Sender: FDA-Public Use
  Company Number: PHHY2011US90216

PATIENT

DRUGS (3)
  1. PHENYTOIN [Suspect]
     Dosage: MATERNAL DOSE: 200 MG
     Route: 064
  2. CARBAMAZEPINE [Suspect]
     Dosage: MATERNAL DOSE: 400 MG
     Route: 064
  3. VALPROIC ACID [Suspect]
     Dosage: MATERNAL DOSE: 500 MG
     Route: 064

REACTIONS (5)
  - CRYPTORCHISM [None]
  - KIDNEY MALFORMATION [None]
  - MATERNAL EXPOSURE DURING PREGNANCY [None]
  - MATERNAL DRUGS AFFECTING FOETUS [None]
  - RENAL APLASIA [None]
